FAERS Safety Report 20359213 (Version 2)
Quarter: 2022Q2

REPORT INFORMATION
  Report Type: Other
  Country: PK (occurrence: None)
  Receive Date: 20220121
  Receipt Date: 20220630
  Transmission Date: 20220720
  Serious: Yes (Other)
  Sender: FDA-Public Use
  Company Number: PK-ROCHE-2313419

PATIENT
  Age: 61 Year
  Sex: Male

DRUGS (2)
  1. RITUXIMAB [Suspect]
     Active Substance: RITUXIMAB
     Indication: Chronic lymphocytic leukaemia
     Dosage: 6 CYCLE
     Route: 041
     Dates: start: 20180228, end: 20181227
  2. GAZYVA [Suspect]
     Active Substance: OBINUTUZUMAB
     Indication: Chronic lymphocytic leukaemia
     Route: 042
     Dates: start: 20210830

REACTIONS (4)
  - Off label use [Unknown]
  - Chronic lymphocytic leukaemia [Unknown]
  - Decreased appetite [Unknown]
  - Asthenia [Unknown]
